FAERS Safety Report 5532046-4 (Version None)
Quarter: 2007Q4

REPORT INFORMATION
  Report Type: 
  Country: None (occurrence: None)
  Receive Date: 20071203
  Receipt Date: 20071120
  Transmission Date: 20080405
  Serious: Yes (Other)
  Sender: FDA-Public Use
  Company Number: B0390266A

PATIENT
  Age: 63 Year
  Sex: Male

DRUGS (6)
  1. ZOVIRAX [Suspect]
     Indication: HERPES OPHTHALMIC
     Route: 047
     Dates: start: 20050405, end: 20050409
  2. ZELITREX [Concomitant]
     Route: 048
  3. FLUCON [Concomitant]
     Route: 047
  4. VITAMINE A DULCIS [Concomitant]
     Route: 047
  5. ZOVIRAX EYE OINTMENT [Concomitant]
     Dates: start: 20050410
  6. ANTIBIOTIC [Concomitant]
     Dates: start: 20050410

REACTIONS (7)
  - ABNORMAL SENSATION IN EYE [None]
  - APPLICATION SITE REACTION [None]
  - DRUG DISPENSING ERROR [None]
  - EYE IRRITATION [None]
  - IMPAIRED HEALING [None]
  - INCORRECT ROUTE OF DRUG ADMINISTRATION [None]
  - ULCERATIVE KERATITIS [None]
